FAERS Safety Report 8372496-4 (Version None)
Quarter: 2012Q2

REPORT INFORMATION
  Report Type: 
  Country: None (occurrence: None)
  Receive Date: 20120521
  Receipt Date: 20120510
  Transmission Date: 20120825
  Serious: Yes (Other)
  Sender: FDA-Public Use
  Company Number: PHHY2011DE113474

PATIENT
  Age: 79 Year
  Sex: Female
  Weight: 50 kg

DRUGS (9)
  1. GLEEVEC [Suspect]
     Dosage: 300 MG PER DAY
     Route: 048
     Dates: start: 20120301
  2. ASPIRIN [Concomitant]
     Dosage: 1 DF, PER DAY
  3. GLEEVEC [Suspect]
     Indication: CHRONIC MYELOID LEUKAEMIA
     Dosage: 400 MG PER DAY
     Route: 048
     Dates: start: 20090101, end: 20120301
  4. TORSEMIDE [Concomitant]
     Dosage: 2.5 MG, UNK
  5. TORSEMIDE [Concomitant]
     Dosage: 2.5 MG, PER DAY
  6. FELODIPINE [Concomitant]
     Dosage: 5 MG, 2 PER DAY
  7. BISOPROLOL FUMARATE [Concomitant]
     Dosage: 1 DF, PER DAY
  8. FORMOTEROL FUMARATE [Concomitant]
     Dosage: 1 DF, IN EVENING
  9. IRON SUPPLEMENTS [Concomitant]
     Indication: ANAEMIA
     Dosage: UNK UKN, UNK

REACTIONS (8)
  - BLOOD CREATININE INCREASED [None]
  - ANAEMIA [None]
  - HELICOBACTER GASTRITIS [None]
  - GASTRIC ULCER [None]
  - GASTROOESOPHAGEAL REFLUX DISEASE [None]
  - OESOPHAGITIS [None]
  - BLOOD UREA INCREASED [None]
  - BLOOD URIC ACID INCREASED [None]
